FAERS Safety Report 21950847 (Version 1)
Quarter: 2023Q1

REPORT INFORMATION
  Report Type: Spontaneous
  Country: PT (occurrence: PT)
  Receive Date: 20230203
  Receipt Date: 20230203
  Transmission Date: 20230417
  Serious: Yes (Other)
  Sender: FDA-Public Use
  Company Number: None

PATIENT
  Age: 84 Year
  Sex: Male

DRUGS (5)
  1. ERLEADA [Suspect]
     Active Substance: APALUTAMIDE
     Indication: Prostate cancer
     Dosage: 240 MG 24/24H
     Route: 048
     Dates: start: 20221124
  2. SILODOSIN [Concomitant]
     Active Substance: SILODOSIN
     Route: 048
  3. ESOMEPRAZOLE [Concomitant]
     Active Substance: ESOMEPRAZOLE
     Route: 048
  4. GOSERELIN ACETATE [Concomitant]
     Active Substance: GOSERELIN ACETATE
     Dates: start: 20221124, end: 20221124
  5. INDAPAMIDE\PERINDOPRIL [Concomitant]
     Active Substance: INDAPAMIDE\PERINDOPRIL
     Route: 048

REACTIONS (5)
  - Fatigue [Recovering/Resolving]
  - Insomnia [Recovering/Resolving]
  - Nightmare [Recovering/Resolving]
  - Dizziness [Recovering/Resolving]
  - Headache [Recovering/Resolving]

NARRATIVE: CASE EVENT DATE: 20221124
